FAERS Safety Report 17914707 (Version 1)
Quarter: 2020Q2

REPORT INFORMATION
  Report Type: Spontaneous
  Country: US (occurrence: US)
  Receive Date: 20200619
  Receipt Date: 20200619
  Transmission Date: 20200714
  Serious: Yes (Hospitalization, Other)
  Sender: FDA-Public Use
  Company Number: US-ABBVIE-20K-163-3449420-00

PATIENT
  Age: 57 Year
  Sex: Male
  Weight: 58.11 kg

DRUGS (1)
  1. CREON [Suspect]
     Active Substance: PANCRELIPASE AMYLASE\PANCRELIPASE LIPASE\PANCRELIPASE PROTEASE
     Indication: PRODUCT USED FOR UNKNOWN INDICATION
     Route: 048

REACTIONS (4)
  - Asthenia [Not Recovered/Not Resolved]
  - Malnutrition [Not Recovered/Not Resolved]
  - Enzyme abnormality [Unknown]
  - Weight decreased [Not Recovered/Not Resolved]
